FAERS Safety Report 5082299-4 (Version None)
Quarter: 2006Q3

REPORT INFORMATION
  Report Type: 
  Country: None (occurrence: None)
  Receive Date: 20060814
  Receipt Date: 20060731
  Transmission Date: 20061208
  Serious: Yes (Other)
  Sender: FDA-Public Use
  Company Number: TRP_0781_2006

PATIENT
  Age: 53 Year
  Sex: Female
  Weight: 54.8852 kg

DRUGS (7)
  1. RIBASPHERE [Suspect]
     Indication: HEPATITIS C
     Dosage: 400 MG BID PO
     Route: 048
     Dates: start: 20060426, end: 20060507
  2. PEGASYS [Suspect]
     Indication: HEPATITIS C
     Dosage: 180 MCG QWK SC
     Route: 058
     Dates: start: 20060426, end: 20060530
  3. PROZAC [Concomitant]
  4. RESTORIL [Concomitant]
  5. WELLBUTRIN [Concomitant]
  6. IBUPROFEN [Concomitant]
  7. PRILOSEC [Concomitant]

REACTIONS (4)
  - ANXIETY [None]
  - DYSPNOEA [None]
  - PALPITATIONS [None]
  - WHITE BLOOD CELL COUNT DECREASED [None]
